FAERS Safety Report 4971600-5 (Version None)
Quarter: 2006Q2

REPORT INFORMATION
  Report Type: 
  Country: None (occurrence: None)
  Receive Date: 20060413
  Receipt Date: 20060403
  Transmission Date: 20061013
  Serious: Yes (Life-Threatening, Other)
  Sender: FDA-Public Use
  Company Number: GB-JNJFOC-20060306841

PATIENT
  Sex: Male
  Weight: 84 kg

DRUGS (7)
  1. HALOPERIDOL [Suspect]
     Indication: SEDATION
     Route: 040
  2. DOPAMINE [Concomitant]
     Route: 042
  3. ASPIRIN [Concomitant]
     Indication: AORTIC VALVE REPLACEMENT
     Route: 048
  4. FLUCLOXACILLIN [Concomitant]
     Indication: AORTIC VALVE REPLACEMENT
     Route: 042
  5. FRUSEMIDE [Concomitant]
     Indication: DIURETIC THERAPY
     Route: 048
  6. TEICOPLANIN [Concomitant]
     Indication: AORTIC VALVE REPLACEMENT
     Route: 042
  7. SODIUM CHLORIDE [Concomitant]
     Dosage: 0.9% FLUSH
     Route: 040

REACTIONS (2)
  - ATRIAL FIBRILLATION [None]
  - CARDIAC ARREST [None]
